FAERS Safety Report 6939585-X (Version None)
Quarter: 2010Q3

REPORT INFORMATION
  Report Type: 
  Country: None (occurrence: None)
  Receive Date: 20100820
  Receipt Date: 20100805
  Transmission Date: 20110219
  Serious: Yes (Hospitalization)
  Sender: FDA-Public Use
  Company Number: 1000015757

PATIENT
  Sex: Female

DRUGS (1)
  1. NEBIVOLOL HCL [Suspect]
     Dosage: 1.25 MG ( 1.25MG, 1 IN 1 D) ORAL
     Route: 048

REACTIONS (2)
  - FALL [None]
  - WHEELCHAIR USER [None]
